FAERS Safety Report 7526863 (Version 2)
Quarter: 2012Q4

REPORT INFORMATION
  Report Type: 
  Country: JP (occurrence: US)
  Receive Date: 20100804
  Receipt Date: 20120907
  Transmission Date: 20130627
  Serious: Yes (Hospitalization, Other)
  Sender: FDA-Public Use
  Company Number: US-JNJFOC-20100305592

PATIENT
  Sex: Female

DRUGS (3)
  1. LEVAQUIN [Suspect]
     Indication: CHRONIC OBSTRUCTIVE PULMONARY DISEASE
     Route: 048
     Dates: start: 200811
  2. LEVAQUIN [Suspect]
     Indication: BRONCHITIS
     Route: 048
     Dates: start: 200811
  3. LEVAQUIN [Suspect]
     Indication: CHRONIC OBSTRUCTIVE PULMONARY DISEASE
     Route: 042
     Dates: start: 200901

REACTIONS (4)
  - Tendon rupture [Unknown]
  - Rotator cuff syndrome [Unknown]
  - Joint injury [Unknown]
  - Post-traumatic pain [Unknown]
